FAERS Safety Report 25579068 (Version 1)
Quarter: 2025Q3

REPORT INFORMATION
  Report Type: Spontaneous
  Country: JP (occurrence: JP)
  Receive Date: 20250718
  Receipt Date: 20250718
  Transmission Date: 20251021
  Serious: Yes (Hospitalization)
  Sender: ARDELYX
  Company Number: JP-ARDELYX-2025ARDX005446

PATIENT

DRUGS (1)
  1. TENAPANOR HYDROCHLORIDE [Suspect]
     Active Substance: TENAPANOR HYDROCHLORIDE
     Indication: Product used for unknown indication
     Route: 048

REACTIONS (8)
  - Hospitalisation [Recovered/Resolved]
  - Constipation [Recovered/Resolved]
  - Blood calcium decreased [Recovered/Resolved]
  - Diarrhoea [Recovered/Resolved]
  - Faeces soft [Recovered/Resolved]
  - Abdominal pain [Recovered/Resolved]
  - Frequent bowel movements [Recovered/Resolved]
  - Product size issue [Unknown]
